FAERS Safety Report 17420467 (Version 1)
Quarter: 2020Q1

REPORT INFORMATION
  Report Type: Report from Study
  Country: NL (occurrence: AU)
  Receive Date: 20200214
  Receipt Date: 20200214
  Transmission Date: 20200409
  Serious: Yes (Hospitalization)
  Sender: FDA-Public Use
  Company Number: NL-MYLANLABS-2020M1016149

PATIENT
  Age: 46 Year
  Sex: Male

DRUGS (1)
  1. METFORMIN [Suspect]
     Active Substance: METFORMIN HYDROCHLORIDE
     Indication: TYPE 2 DIABETES MELLITUS
     Dosage: UNK
     Route: 065

REACTIONS (6)
  - Pneumonia [Recovered/Resolved]
  - Meningitis [Recovered/Resolved]
  - Liver abscess [Recovered/Resolved]
  - Multiple organ dysfunction syndrome [Recovered/Resolved]
  - Burkholderia pseudomallei infection [Recovered/Resolved]
  - Septic shock [Recovered/Resolved]
